FAERS Safety Report 4382841-2 (Version None)
Quarter: 2004Q2

REPORT INFORMATION
  Report Type: 
  Country: None (occurrence: None)
  Receive Date: 20040602
  Receipt Date: 20031001
  Transmission Date: 20050107
  Serious: Yes (Hospitalization)
  Sender: FDA-Public Use
  Company Number: NSADS2001036223

PATIENT
  Age: 46 Year
  Sex: Female
  Weight: 63.5036 kg

DRUGS (5)
  1. PROPULSID [Suspect]
     Indication: GASTROOESOPHAGEAL REFLUX DISEASE
     Dosage: 10 MG, 2 IN 1 DAY, ORAL
     Route: 048
     Dates: start: 19980501
  2. PREVACID [Concomitant]
  3. NADOLOL [Concomitant]
  4. LISINOPRIL [Concomitant]
  5. HYDROCHLOROTHIAZIDE (HYDROCHLORTHIAZIDE) [Concomitant]

REACTIONS (6)
  - ATHEROSCLEROSIS [None]
  - CHEST PAIN [None]
  - HEART RATE INCREASED [None]
  - MEDICATION ERROR [None]
  - PALPITATIONS [None]
  - PULSE ABNORMAL [None]
